FAERS Safety Report 5802972-7 (Version None)
Quarter: 2008Q2

REPORT INFORMATION
  Report Type: 
  Country: None (occurrence: None)
  Receive Date: 20080626
  Receipt Date: 20080128
  Transmission Date: 20081010
  Serious: No
  Sender: FDA-Public Use
  Company Number: US-CVT-080008

PATIENT
  Age: 84 Year
  Sex: Male

DRUGS (9)
  1. RANEXA [Suspect]
     Indication: ANGINA PECTORIS
     Dosage: 500 MG, BID, ORAL
     Route: 048
     Dates: start: 20070401, end: 20071101
  2. NISULIN LISPRO (INSULIN LISPRO) [Concomitant]
  3. LANTUS [Concomitant]
  4. IMDUR [Concomitant]
  5. TOPROL-XL [Concomitant]
  6. PLAVIX [Concomitant]
  7. HYZAAR [Concomitant]
  8. LIPITOR [Concomitant]
  9. NITROGLYCERIN [Concomitant]

REACTIONS (2)
  - CARDIAC FAILURE [None]
  - VENTRICULAR EXTRASYSTOLES [None]
